FAERS Safety Report 7705560-0 (Version None)
Quarter: 2011Q3

REPORT INFORMATION
  Report Type: 
  Country: None (occurrence: None)
  Receive Date: 20110824
  Receipt Date: 20110816
  Transmission Date: 20111222
  Serious: Yes (Other)
  Sender: FDA-Public Use
  Company Number: US-JNJFOC-20110809492

PATIENT
  Sex: Female

DRUGS (1)
  1. DOXIL [Suspect]
     Indication: NEOPLASM MALIGNANT
     Route: 042

REACTIONS (3)
  - COGNITIVE DISORDER [None]
  - APHASIA [None]
  - PRODUCT QUALITY ISSUE [None]
